FAERS Safety Report 7574245-6 (Version None)
Quarter: 2011Q2

REPORT INFORMATION
  Report Type: 
  Country: None (occurrence: None)
  Receive Date: 20110627
  Receipt Date: 20110103
  Transmission Date: 20111010
  Serious: Yes (Hospitalization, Other)
  Sender: FDA-Public Use
  Company Number: US-BAYER-201027418NA

PATIENT
  Age: 47 Year
  Sex: Female
  Weight: 67 kg

DRUGS (6)
  1. DROSPIRENONE AND ETHINYL ESTRADIOL [Suspect]
     Dosage: UNK
     Dates: start: 20080715, end: 20090912
  2. YASMIN [Suspect]
     Dosage: UNK
     Dates: start: 20060131, end: 20080616
  3. MOTRIN [Concomitant]
     Dosage: TWICE A MONTH
  4. YASMIN [Suspect]
     Indication: CONTRACEPTION
     Dosage: UNK UNK, QD
     Route: 048
     Dates: start: 20060131, end: 20080616
  5. HYDROCODONE [Concomitant]
     Dosage: UNK
     Dates: start: 20080501
  6. DROSPIRENONE AND ETHINYL ESTRADIOL [Suspect]
     Indication: CONTRACEPTION
     Dosage: UNK
     Dates: start: 20080715, end: 20090912

REACTIONS (5)
  - GALLBLADDER CHOLESTEROLOSIS [None]
  - CHOLECYSTECTOMY [None]
  - ABDOMINAL PAIN UPPER [None]
  - CHOLECYSTITIS CHRONIC [None]
  - CHOLELITHIASIS [None]
